FAERS Safety Report 4677444-6 (Version None)
Quarter: 2005Q2

REPORT INFORMATION
  Report Type: 
  Country: None (occurrence: None)
  Receive Date: 20050531
  Receipt Date: 20050517
  Transmission Date: 20051028
  Serious: Yes (Hospitalization)
  Sender: FDA-Public Use
  Company Number: PHBS2005JP07078

PATIENT
  Age: 89 Year
  Sex: Male
  Weight: 55 kg

DRUGS (3)
  1. ASPIRIN [Concomitant]
  2. GASTER [Concomitant]
  3. VOLTAREN [Suspect]
     Indication: PYREXIA
     Dosage: 25 MG, ONCE/SINGLE
     Route: 054
     Dates: start: 20040424, end: 20040424

REACTIONS (2)
  - DEPRESSED LEVEL OF CONSCIOUSNESS [None]
  - HYPOTENSION [None]
